FAERS Safety Report 5279587-5 (Version None)
Quarter: 2007Q1

REPORT INFORMATION
  Report Type: 
  Country: None (occurrence: None)
  Receive Date: 20070323
  Receipt Date: 20070315
  Transmission Date: 20070707
  Serious: Yes (Other)
  Sender: FDA-Public Use
  Company Number: CHPA2007US00944

PATIENT
  Age: 85 Year
  Sex: Female
  Weight: 64.4 kg

DRUGS (8)
  1. TRANSDERM SCOP [Suspect]
     Indication: VERTIGO
     Dosage: 1.5 MG, Q72H, TRANSDERMAL
     Route: 062
     Dates: start: 20070112, end: 20070115
  2. PLAVIX [Concomitant]
  3. ISOSORBIDE (ISOSORBIDE) [Concomitant]
  4. POTASSIUM (POTASSIUM) [Concomitant]
  5. TOPROL-XL [Concomitant]
  6. DIGOXIN [Concomitant]
  7. APSIRIN (ACETYLSALICYLIC ACID) [Concomitant]
  8. HYDROCHLOROTHIAZIDE [Concomitant]

REACTIONS (10)
  - CHEST DISCOMFORT [None]
  - DRUG TOXICITY [None]
  - DYSPNOEA [None]
  - FLUID RETENTION [None]
  - HALLUCINATION, VISUAL [None]
  - OVERDOSE [None]
  - PAIN IN EXTREMITY [None]
  - RASH ERYTHEMATOUS [None]
  - RASH GENERALISED [None]
  - RASH PRURITIC [None]
